FAERS Safety Report 4813124-1 (Version None)
Quarter: 2005Q4

REPORT INFORMATION
  Report Type: 
  Country: None (occurrence: None)
  Receive Date: 20051028
  Receipt Date: 20050615
  Transmission Date: 20060501
  Serious: No
  Sender: FDA-Public Use
  Company Number: US-GLAXOSMITHKLINE-A0562814A

PATIENT
  Sex: Female

DRUGS (11)
  1. ADVAIR DISKUS 100/50 [Suspect]
     Indication: DRUG USE FOR UNKNOWN INDICATION
     Dosage: 1PUFF TWICE PER DAY
     Route: 055
  2. AMITRIPTYLINE HCL [Concomitant]
  3. LANTUS [Concomitant]
  4. NYSTATIN [Concomitant]
  5. ZAROXOLYN [Concomitant]
  6. FUROSAMIDE [Concomitant]
  7. POTASSIUM [Concomitant]
  8. METFORMIN HCL [Concomitant]
  9. PREVACID [Concomitant]
  10. ZOCOR [Concomitant]
  11. HUMALOG [Concomitant]

REACTIONS (2)
  - BLOOD GLUCOSE INCREASED [None]
  - WEIGHT INCREASED [None]
